FAERS Safety Report 5708759-8 (Version None)
Quarter: 2008Q2

REPORT INFORMATION
  Report Type: 
  Country: None (occurrence: None)
  Receive Date: 20080416
  Receipt Date: 20080407
  Transmission Date: 20081010
  Serious: Yes (Hospitalization)
  Sender: FDA-Public Use
  Company Number: B0516204A

PATIENT
  Sex: Female

DRUGS (6)
  1. ZIDOVUDINE [Suspect]
     Indication: ANTIVIRAL PROPHYLAXIS
  2. LAMIVUDINE [Suspect]
     Indication: ANTIVIRAL PROPHYLAXIS
  3. NEVIRAPINE [Suspect]
     Indication: ANTIVIRAL PROPHYLAXIS
  4. DEXCHLORPHENIRAM.MALEATE (FORMULATION UNKNOWN) (DECHLORPHENIRAM.MALEAT [Suspect]
     Indication: RASH GENERALISED
  5. PREDNISONE [Suspect]
     Indication: RASH GENERALISED
     Dosage: 40 MG / PER DAY/
  6. NELFINAVIR MESYLATE (FORMULATION UNKNOWN) (NELFINAVIR MESYLATE) [Suspect]
     Indication: ANTIVIRAL PROPHYLAXIS

REACTIONS (9)
  - CAESAREAN SECTION [None]
  - CHORIORETINITIS [None]
  - CONGENITAL TOXOPLASMOSIS [None]
  - CSF PROTEIN INCREASED [None]
  - DRUG EXPOSURE DURING PREGNANCY [None]
  - NEONATAL DISORDER [None]
  - NEONATAL RESPIRATORY DISTRESS SYNDROME [None]
  - PREMATURE BABY [None]
  - SMALL FOR DATES BABY [None]
